FAERS Safety Report 5817647-8 (Version None)
Quarter: 2008Q3

REPORT INFORMATION
  Report Type: 
  Country: None (occurrence: None)
  Receive Date: 20080717
  Receipt Date: 20080707
  Transmission Date: 20090109
  Serious: Yes (Other)
  Sender: FDA-Public Use
  Company Number: OMPQ-NO-0807L-0444

PATIENT
  Age: 75 Year

DRUGS (4)
  1. OMNIPAQUE 140 [Suspect]
     Indication: ACUTE MYOCARDIAL INFARCTION
     Dosage: 170 ML, SINGLE DOSE, I.A.
  2. HEPARIN [Concomitant]
  3. VERAPAMIL [Concomitant]
  4. GLYCERYL TRINITRATE (NITROGLYCERINE) [Concomitant]

REACTIONS (2)
  - BLINDNESS [None]
  - DISORIENTATION [None]
